FAERS Safety Report 9731043 (Version 2)
Quarter: 2014Q1

REPORT INFORMATION
  Report Type: Spontaneous
  Country: US (occurrence: US)
  Receive Date: 20131205
  Receipt Date: 20140115
  Transmission Date: 20141002
  Serious: No
  Sender: FDA-Public Use
  Company Number: US-BIOGENIDEC-2013BI115004

PATIENT
  Age: 54 Year
  Sex: Female

DRUGS (4)
  1. TYSABRI [Suspect]
     Indication: MULTIPLE SCLEROSIS
     Route: 042
     Dates: start: 20120427, end: 20121010
  2. GABAPENTIN [Concomitant]
     Indication: NEURALGIA
  3. GABAPENTIN [Concomitant]
     Indication: NEURALGIA
  4. TIZANIDINE [Concomitant]

REACTIONS (4)
  - Feeling abnormal [Recovered/Resolved]
  - Stress [Unknown]
  - Facial spasm [Unknown]
  - Drug tolerance decreased [Unknown]
